FAERS Safety Report 13855121 (Version 3)
Quarter: 2018Q1

REPORT INFORMATION
  Report Type: Spontaneous
  Country: FI (occurrence: FI)
  Receive Date: 20170810
  Receipt Date: 20180315
  Transmission Date: 20180508
  Serious: Yes (Other)
  Sender: FDA-Public Use
  Company Number: FI-PFIZER INC-2017337525

PATIENT
  Age: 58 Year
  Sex: Female

DRUGS (7)
  1. MEDROL [Suspect]
     Active Substance: METHYLPREDNISOLONE
     Dosage: UNK (HIGH DOSE)
  2. MEDROL [Suspect]
     Active Substance: METHYLPREDNISOLONE
     Dosage: 4 MG, UNK
     Dates: start: 20170728, end: 20170728
  3. BRICANYL [Concomitant]
     Active Substance: TERBUTALINE SULFATE
     Indication: OCCUPATIONAL ASTHMA
     Dosage: UNK
  4. NASONEX [Concomitant]
     Active Substance: MOMETASONE FUROATE
     Dosage: UNK
  5. MEDROL [Suspect]
     Active Substance: METHYLPREDNISOLONE
     Dosage: 16 MG, UNK
  6. MEDROL [Suspect]
     Active Substance: METHYLPREDNISOLONE
     Indication: OCCUPATIONAL ASTHMA
     Dosage: UNK
     Dates: start: 2004
  7. PULMICORT TURBUHALER [Concomitant]
     Active Substance: BUDESONIDE
     Indication: OCCUPATIONAL ASTHMA
     Dosage: UNK (TURBOHALER)
     Dates: end: 201708

REACTIONS (16)
  - Abnormal behaviour [Recovering/Resolving]
  - Irritability [Recovering/Resolving]
  - Confusional state [Recovering/Resolving]
  - Anxiety [Recovering/Resolving]
  - Restlessness [Recovering/Resolving]
  - Affective disorder [Recovering/Resolving]
  - Mania [Recovering/Resolving]
  - Suicidal ideation [Recovering/Resolving]
  - Tearfulness [Recovering/Resolving]
  - Anger [Recovering/Resolving]
  - Thinking abnormal [Recovering/Resolving]
  - Personality change [Recovering/Resolving]
  - Cushingoid [Unknown]
  - Agitation [Recovering/Resolving]
  - Insomnia [Recovering/Resolving]
  - Drug hypersensitivity [Unknown]

NARRATIVE: CASE EVENT DATE: 2014
